FAERS Safety Report 19679979 (Version 1)
Quarter: 2021Q3

REPORT INFORMATION
  Report Type: Spontaneous
  Country: DE (occurrence: DE)
  Receive Date: 20210809
  Receipt Date: 20210809
  Transmission Date: 20211014
  Serious: Yes (Death)
  Sender: FDA-Public Use
  Company Number: NVSC2021DE178950

PATIENT
  Sex: Male

DRUGS (1)
  1. LEUPRONE HEXAL 3?MONATSDEPOT [Suspect]
     Active Substance: LEUPROLIDE ACETATE
     Indication: PRODUCT USED FOR UNKNOWN INDICATION
     Dosage: UNK (3 MONTHLY DEPOT)
     Route: 065

REACTIONS (4)
  - Blood testosterone increased [Fatal]
  - Prostatic specific antigen increased [Fatal]
  - Therapeutic response decreased [Fatal]
  - Condition aggravated [Fatal]
